FAERS Safety Report 8127055-5 (Version None)
Quarter: 2011Q4

REPORT INFORMATION
  Report Type: 
  Country: None (occurrence: None)
  Receive Date: 20111227
  Receipt Date: 20110912
  Transmission Date: 20120403
  Serious: No
  Sender: FDA-Public Use
  Company Number: PHHY2010US86538

PATIENT
  Age: 34 Year
  Sex: Female

DRUGS (9)
  1. TRAZODONE HCL [Concomitant]
  2. BENADRYL (AMMONIUM CHLORIDE, DIPHENHYDRAMINE HYDROCHLORIDE, MENTHOL, S [Concomitant]
  3. COPAXONE [Concomitant]
  4. LAMOTRIGINE [Concomitant]
  5. AMANTADINE (AMANTADINE) TABLET [Concomitant]
  6. LYRICA [Concomitant]
  7. GILENYA [Suspect]
     Indication: MULTIPLE SCLEROSIS
     Dosage: 0.5 MG, QD, ORAL
     Route: 048
     Dates: start: 20101201
  8. PREDNISONE TAB [Concomitant]
  9. BACLOFEN [Concomitant]

REACTIONS (9)
  - DRUG HYPERSENSITIVITY [None]
  - RASH [None]
  - VISION BLURRED [None]
  - ANXIETY [None]
  - FATIGUE [None]
  - SOMNOLENCE [None]
  - EYE PAIN [None]
  - EYE SWELLING [None]
  - URTICARIA [None]
